FAERS Safety Report 7604071-0 (Version None)
Quarter: 2011Q2

REPORT INFORMATION
  Report Type: 
  Country: None (occurrence: None)
  Receive Date: 20110630
  Receipt Date: 20110616
  Transmission Date: 20111010
  Serious: Yes (Hospitalization)
  Sender: FDA-Public Use
  Company Number: 2011AP001251

PATIENT
  Age: 50 Year
  Sex: Female

DRUGS (2)
  1. AMLODIPINE BESYLATE [Suspect]
     Indication: HYPERTENSION
     Dosage: 770 MG
  2. LOSARTAN POTASSIUM [Suspect]
     Indication: HYPERTENSION
     Dosage: 16640 MG

REACTIONS (14)
  - NO THERAPEUTIC RESPONSE [None]
  - BLOOD GLUCOSE INCREASED [None]
  - VOMITING [None]
  - ANURIA [None]
  - TOXICITY TO VARIOUS AGENTS [None]
  - MULTIPLE DRUG OVERDOSE [None]
  - METABOLIC ACIDOSIS [None]
  - RENAL IMPAIRMENT [None]
  - PULMONARY OEDEMA [None]
  - BLOOD CREATININE INCREASED [None]
  - HYPOTENSION [None]
  - HYPOXIA [None]
  - BLOOD UREA INCREASED [None]
  - HYPERKALAEMIA [None]
